FAERS Safety Report 8996505 (Version 5)
Quarter: 2013Q2

REPORT INFORMATION
  Report Type: Spontaneous
  Country: US (occurrence: US)
  Receive Date: 20130104
  Receipt Date: 20130611
  Transmission Date: 20140414
  Serious: No
  Sender: FDA-Public Use
  Company Number: US-009507513-1301USA000190

PATIENT
  Age: 56 Year
  Sex: Female

DRUGS (3)
  1. PEGINTRON [Suspect]
     Indication: HEPATITIS C
     Dosage: UNK
     Dates: start: 20121214, end: 20130524
  2. REBETOL [Suspect]
     Indication: HEPATITIS C
     Dosage: UNK
     Route: 048
     Dates: start: 20121214, end: 20130531
  3. REBETOL [Suspect]
     Dosage: UNK
     Route: 048
     Dates: start: 2013

REACTIONS (62)
  - Psychomotor hyperactivity [Unknown]
  - Impatience [Unknown]
  - Lip dry [Unknown]
  - Injection site erythema [Unknown]
  - Fatigue [Unknown]
  - Nasopharyngitis [Unknown]
  - Influenza [Unknown]
  - Pyrexia [Unknown]
  - Cough [Unknown]
  - Musculoskeletal discomfort [Unknown]
  - Rash [Unknown]
  - Fatigue [Unknown]
  - Anxiety [Not Recovered/Not Resolved]
  - Injection site erythema [Unknown]
  - Platelet count decreased [Unknown]
  - Dysgeusia [Unknown]
  - Constipation [Unknown]
  - Dry mouth [Unknown]
  - Insomnia [Unknown]
  - Irritability [Unknown]
  - Pollakiuria [Unknown]
  - Gastrointestinal disorder [Unknown]
  - Decreased appetite [Unknown]
  - Fatigue [Unknown]
  - Rash [Unknown]
  - Pain [Unknown]
  - Gingival bleeding [Unknown]
  - Tachycardia [Unknown]
  - Heart rate increased [Unknown]
  - Influenza like illness [Unknown]
  - Pyrexia [Unknown]
  - Rhinitis [Unknown]
  - Cough [Unknown]
  - Anaemia [Unknown]
  - Haemoglobin decreased [Unknown]
  - Weight decreased [Unknown]
  - Diarrhoea [Unknown]
  - Tachycardia [Unknown]
  - Heart rate increased [Unknown]
  - Rhinitis [Unknown]
  - Influenza like illness [Unknown]
  - Pyrexia [Unknown]
  - Fatigue [Unknown]
  - Respiratory disorder [Unknown]
  - Depression [Unknown]
  - Anxiety [Unknown]
  - Rash [Unknown]
  - Cough [Unknown]
  - Respiratory disorder [Unknown]
  - Dysphagia [Unknown]
  - Gastrointestinal disorder [Unknown]
  - Weight decreased [Unknown]
  - Irritability [Unknown]
  - White blood cell count decreased [Unknown]
  - Leukopenia [Unknown]
  - Anaemia [Unknown]
  - Haemoglobin decreased [Unknown]
  - Fatigue [Unknown]
  - Hyperhidrosis [Unknown]
  - Malaise [Unknown]
  - Hypotension [Unknown]
  - Alopecia [Unknown]
